FAERS Safety Report 7381606-7 (Version None)
Quarter: 2011Q1

REPORT INFORMATION
  Report Type: 
  Country: None (occurrence: None)
  Receive Date: 20110329
  Receipt Date: 20100804
  Transmission Date: 20110831
  Serious: Yes (Death, Other)
  Sender: FDA-Public Use
  Company Number: JP-BAYER-201010497BYL

PATIENT
  Age: 69 Year
  Sex: Male
  Weight: 56 kg

DRUGS (12)
  1. ARTIST [Concomitant]
     Dosage: SINCE BEFORE ADMINISTRATION
     Route: 048
  2. TANATRIL [Concomitant]
     Dosage: SINCE BEFORE ADMINISTRATION
     Route: 048
  3. EURODIN [Concomitant]
     Dosage: SINCE BEFORE ADMINISTRATION
     Route: 048
  4. CALBLOCK [Concomitant]
     Dosage: SINCE BEFORE ADMINISTRATION
     Route: 048
  5. AMARYL [Concomitant]
     Dosage: SINCE BEFORE ADMINISTRATION
     Route: 048
  6. ZYLORIC [Concomitant]
     Dosage: SINCE BEFORE ADMINISTRATION
     Route: 048
  7. OXYCONTIN [Concomitant]
     Dosage: SINCE BEFORE ADMINISTRATION
     Route: 048
  8. NEXAVAR [Suspect]
     Indication: HEPATIC NEOPLASM MALIGNANT
     Route: 048
     Dates: start: 20090629, end: 20090805
  9. NEXAVAR [Suspect]
     Dosage: 400 MG (DAILY DOSE), , ORAL
     Route: 048
     Dates: start: 20090806, end: 20100406
  10. FALKAMIN [Concomitant]
     Dosage: 3 DF, UNK
     Route: 048
  11. OMEPRAL [Concomitant]
     Dosage: SINCE BEFORE ADMINISTRATION
     Route: 048
  12. LIVACT [Concomitant]
     Dosage: SINCE BEFORE ADMINISTRATION
     Route: 048

REACTIONS (5)
  - RASH [None]
  - RESPIRATORY ARREST [None]
  - BLOOD PRESSURE DECREASED [None]
  - ANAEMIA [None]
  - HEPATIC FUNCTION ABNORMAL [None]
